FAERS Safety Report 15494697 (Version 1)
Quarter: 2018Q4

REPORT INFORMATION
  Report Type: Report from Study
  Country: DE (occurrence: DE)
  Receive Date: 20181012
  Receipt Date: 20181012
  Transmission Date: 20190205
  Serious: Yes (Hospitalization)
  Sender: FDA-Public Use
  Company Number: PHHY2017DE146496

PATIENT
  Sex: Female
  Weight: 137 kg

DRUGS (11)
  1. COSENTYX [Suspect]
     Active Substance: SECUKINUMAB
     Indication: PSORIATIC ARTHROPATHY
     Dosage: 300 MG, ONCE
     Route: 065
     Dates: start: 20170406
  2. COSENTYX [Suspect]
     Active Substance: SECUKINUMAB
     Dosage: 300 MG, ONCE
     Route: 065
     Dates: start: 20170413
  3. COSENTYX [Suspect]
     Active Substance: SECUKINUMAB
     Dosage: 300 MG, ONCE
     Route: 065
     Dates: start: 20170520
  4. IBUPROFEN. [Concomitant]
     Active Substance: IBUPROFEN
     Indication: PAIN
     Dosage: 600 MG, UNK
     Route: 048
  5. COSENTYX [Suspect]
     Active Substance: SECUKINUMAB
     Dosage: 300 MG, ONCE
     Route: 065
     Dates: start: 20170604
  6. COSENTYX [Suspect]
     Active Substance: SECUKINUMAB
     Dosage: 300 MG, ONCE
     Route: 065
     Dates: start: 20170805
  7. COSENTYX [Suspect]
     Active Substance: SECUKINUMAB
     Dosage: 300 MG, ONCE
     Route: 065
     Dates: start: 20170420
  8. OXYCODONE [Concomitant]
     Active Substance: OXYCODONE
     Indication: PAIN
     Dosage: 20 MG IN THE MORNING, 10 MG IN THE EVENING
     Route: 048
  9. COSENTYX [Suspect]
     Active Substance: SECUKINUMAB
     Dosage: 300 MG, ONCE
     Route: 065
     Dates: start: 20170708
  10. COSENTYX [Suspect]
     Active Substance: SECUKINUMAB
     Dosage: 300 MG, ONCE
     Route: 065
     Dates: start: 20170427
  11. COSENTYX [Suspect]
     Active Substance: SECUKINUMAB
     Dosage: 300 MG, ONCE
     Route: 065
     Dates: start: 20170902, end: 20170918

REACTIONS (1)
  - Pyoderma [Not Recovered/Not Resolved]

NARRATIVE: CASE EVENT DATE: 20170911
